FAERS Safety Report 7963703-8 (Version None)
Quarter: 2011Q4

REPORT INFORMATION
  Report Type: 
  Country: None (occurrence: None)
  Receive Date: 20111208
  Receipt Date: 20111128
  Transmission Date: 20120403
  Serious: Yes (Hospitalization, Other)
  Sender: FDA-Public Use
  Company Number: US-BAYER-2011-053819

PATIENT
  Age: 25 Year
  Sex: Female
  Weight: 73 kg

DRUGS (6)
  1. LORAZEPAM [Concomitant]
     Indication: ANXIETY
     Dosage: 0.5 MG, BID, DAILY
     Dates: start: 20080101, end: 20090601
  2. INVEGA [Concomitant]
     Indication: OBSESSIVE-COMPULSIVE DISORDER
     Dosage: 6 MG,
     Dates: start: 20080701, end: 20100101
  3. YAZ [Suspect]
     Indication: CONTRACEPTION
     Dosage: UNK
     Dates: start: 20070522, end: 20090622
  4. YASMIN [Suspect]
     Indication: CONTRACEPTION
     Dosage: UNK
     Dates: start: 20040501, end: 20070522
  5. EFFEXOR [Concomitant]
     Indication: DEPRESSION
     Dosage: 75 MG,
     Dates: start: 20090101
  6. CLONAZEPAM [Concomitant]
     Dosage: 0.5 MG, BID, DAILY
     Dates: start: 20090101

REACTIONS (4)
  - PULMONARY EMBOLISM [None]
  - HEART RATE INCREASED [None]
  - LUNG DISORDER [None]
  - SINUS TACHYCARDIA [None]
